FAERS Safety Report 8583775 (Version 14)
Quarter: 2013Q4

REPORT INFORMATION
  Report Type: Spontaneous
  Country: US (occurrence: US)
  Receive Date: 20120529
  Receipt Date: 20131107
  Transmission Date: 20140711
  Serious: Yes (Hospitalization, Other)
  Sender: FDA-Public Use
  Company Number: US-ASTRAZENECA-2012SE32264

PATIENT
  Age: 82 Year
  Sex: Female
  Weight: 77.1 kg

DRUGS (41)
  1. SEROQUEL [Suspect]
     Indication: SCHIZOPHRENIA
     Route: 048
  2. SEROQUEL [Suspect]
     Indication: NERVOUSNESS
     Route: 048
  3. SEROQUEL [Suspect]
     Indication: ANXIETY DISORDER
     Route: 048
  4. SEROQUEL [Suspect]
     Indication: ANXIETY
     Route: 048
  5. SEROQUEL [Suspect]
     Indication: SLEEP DISORDER
     Route: 048
  6. SEROQUEL [Suspect]
     Indication: SCHIZOPHRENIA
     Route: 048
  7. SEROQUEL [Suspect]
     Indication: NERVOUSNESS
     Route: 048
  8. SEROQUEL [Suspect]
     Indication: ANXIETY DISORDER
     Route: 048
  9. SEROQUEL [Suspect]
     Indication: ANXIETY
     Route: 048
  10. SEROQUEL [Suspect]
     Indication: SLEEP DISORDER
     Route: 048
  11. SEROQUEL [Suspect]
     Indication: SCHIZOPHRENIA
     Route: 048
  12. SEROQUEL [Suspect]
     Indication: NERVOUSNESS
     Route: 048
  13. SEROQUEL [Suspect]
     Indication: ANXIETY DISORDER
     Route: 048
  14. SEROQUEL [Suspect]
     Indication: ANXIETY
     Route: 048
  15. SEROQUEL [Suspect]
     Indication: SLEEP DISORDER
     Route: 048
  16. SEROQUEL [Suspect]
     Indication: SCHIZOPHRENIA
     Dosage: 75 MG IN MORNING AND 75 MG AT NIGHT
     Route: 048
     Dates: start: 2011, end: 201209
  17. SEROQUEL [Suspect]
     Indication: NERVOUSNESS
     Dosage: 75 MG IN MORNING AND 75 MG AT NIGHT
     Route: 048
     Dates: start: 2011, end: 201209
  18. SEROQUEL [Suspect]
     Indication: ANXIETY DISORDER
     Dosage: 75 MG IN MORNING AND 75 MG AT NIGHT
     Route: 048
     Dates: start: 2011, end: 201209
  19. SEROQUEL [Suspect]
     Indication: ANXIETY
     Dosage: 75 MG IN MORNING AND 75 MG AT NIGHT
     Route: 048
     Dates: start: 2011, end: 201209
  20. SEROQUEL [Suspect]
     Indication: SLEEP DISORDER
     Dosage: 75 MG IN MORNING AND 75 MG AT NIGHT
     Route: 048
     Dates: start: 2011, end: 201209
  21. SEROQUEL [Suspect]
     Indication: SCHIZOPHRENIA
     Dosage: 25 MG SIX TIMES A DAY
     Route: 048
  22. SEROQUEL [Suspect]
     Indication: NERVOUSNESS
     Dosage: 25 MG SIX TIMES A DAY
     Route: 048
  23. SEROQUEL [Suspect]
     Indication: ANXIETY DISORDER
     Dosage: 25 MG SIX TIMES A DAY
     Route: 048
  24. SEROQUEL [Suspect]
     Indication: ANXIETY
     Dosage: 25 MG SIX TIMES A DAY
     Route: 048
  25. SEROQUEL [Suspect]
     Indication: SLEEP DISORDER
     Dosage: 25 MG SIX TIMES A DAY
     Route: 048
  26. SEROQUEL [Suspect]
     Indication: SCHIZOPHRENIA
     Route: 048
  27. SEROQUEL [Suspect]
     Indication: NERVOUSNESS
     Route: 048
  28. SEROQUEL [Suspect]
     Indication: ANXIETY DISORDER
     Route: 048
  29. SEROQUEL [Suspect]
     Indication: ANXIETY
     Route: 048
  30. SEROQUEL [Suspect]
     Indication: SLEEP DISORDER
     Route: 048
  31. SEROQUEL [Suspect]
     Indication: SCHIZOPHRENIA
     Dosage: 75 MG IN THE MORNING AND 75MG AT NIGHT
     Route: 048
  32. SEROQUEL [Suspect]
     Indication: NERVOUSNESS
     Dosage: 75 MG IN THE MORNING AND 75MG AT NIGHT
     Route: 048
  33. SEROQUEL [Suspect]
     Indication: ANXIETY DISORDER
     Dosage: 75 MG IN THE MORNING AND 75MG AT NIGHT
     Route: 048
  34. SEROQUEL [Suspect]
     Indication: ANXIETY
     Dosage: 75 MG IN THE MORNING AND 75MG AT NIGHT
     Route: 048
  35. SEROQUEL [Suspect]
     Indication: SLEEP DISORDER
     Dosage: 75 MG IN THE MORNING AND 75MG AT NIGHT
     Route: 048
  36. METOPROLOL TARTRATE [Suspect]
     Route: 065
  37. ATIVAN [Concomitant]
     Indication: NERVOUS SYSTEM DISORDER
     Dosage: GENERIC, 0.5 MG THREE TIMES DAY
     Route: 048
  38. CHOLESTEROL MEDICATION [Concomitant]
  39. KIDNEY MEDICATION [Concomitant]
  40. VITAMINS [Concomitant]
  41. HUNDREDS OF MEDICATION [Concomitant]

REACTIONS (45)
  - Suicidal ideation [Unknown]
  - Cerebrovascular accident [Unknown]
  - Lower limb fracture [Unknown]
  - Bipolar I disorder [Unknown]
  - Morbid thoughts [Unknown]
  - Fall [Not Recovered/Not Resolved]
  - Cataract [Unknown]
  - Hearing impaired [Unknown]
  - Eye disorder [Unknown]
  - Dry skin [Unknown]
  - Anxiety [Not Recovered/Not Resolved]
  - Visual impairment [Unknown]
  - Nervousness [Unknown]
  - Confusional state [Unknown]
  - Insomnia [Unknown]
  - Feeling abnormal [Unknown]
  - Chest discomfort [Unknown]
  - Malaise [Unknown]
  - Headache [Unknown]
  - Conversion disorder [Unknown]
  - Pain in extremity [Unknown]
  - General physical health deterioration [Unknown]
  - Balance disorder [Not Recovered/Not Resolved]
  - Sensation of heaviness [Unknown]
  - Thinking abnormal [Unknown]
  - Dysphonia [Unknown]
  - Crying [Unknown]
  - Dry throat [Unknown]
  - Fear [Unknown]
  - Inappropriate affect [Unknown]
  - Thirst [Not Recovered/Not Resolved]
  - Gait disturbance [Not Recovered/Not Resolved]
  - Muscle spasms [Unknown]
  - Restlessness [Unknown]
  - Dry mouth [Unknown]
  - Psychomotor hyperactivity [Unknown]
  - Palpitations [Unknown]
  - Somnolence [Unknown]
  - Fatigue [Unknown]
  - Dyskinesia [Unknown]
  - Sedation [Unknown]
  - Dizziness [Not Recovered/Not Resolved]
  - Off label use [Not Recovered/Not Resolved]
  - Intentional drug misuse [Unknown]
  - Drug ineffective for unapproved indication [Unknown]
